FAERS Safety Report 8432203-3 (Version None)
Quarter: 2012Q2

REPORT INFORMATION
  Report Type: 
  Country: None (occurrence: None)
  Receive Date: 20120613
  Receipt Date: 20120605
  Transmission Date: 20120825
  Serious: Yes (Death, Hospitalization)
  Sender: FDA-Public Use
  Company Number: US-BRISTOL-MYERS SQUIBB COMPANY-15747744

PATIENT
  Age: 34 Year
  Sex: Female

DRUGS (11)
  1. BENADRYL [Concomitant]
     Dates: start: 20110512
  2. KEPPRA [Concomitant]
  3. MARINOL [Concomitant]
  4. IPILIMUMAB [Suspect]
     Indication: MALIGNANT MELANOMA
     Route: 042
     Dates: start: 20110324
  5. INAPSINE [Concomitant]
     Dates: start: 20110512
  6. DECADRON [Concomitant]
  7. COMPAZINE [Concomitant]
  8. DILANTIN [Concomitant]
     Dosage: 1 DF-300 UNITS NOS
  9. METOPROLOL TARTRATE [Concomitant]
  10. ZOFRAN [Concomitant]
  11. XANAX [Concomitant]

REACTIONS (3)
  - CONVULSION [None]
  - NEOPLASM MALIGNANT [None]
  - VOMITING [None]
